FAERS Safety Report 8289255-3 (Version None)
Quarter: 2012Q2

REPORT INFORMATION
  Report Type: 
  Country: None (occurrence: None)
  Receive Date: 20120417
  Receipt Date: 20120412
  Transmission Date: 20120825
  Serious: Yes (Hospitalization)
  Sender: FDA-Public Use
  Company Number: PHHY2012GB030999

PATIENT
  Age: 30 Year
  Sex: Male

DRUGS (1)
  1. ONDANSETRON [Suspect]
     Indication: ANTIEMETIC SUPPORTIVE CARE
     Dosage: 8 MG, UNK
     Route: 042
     Dates: start: 20120126, end: 20120126

REACTIONS (5)
  - MUSCULAR WEAKNESS [None]
  - VOMITING [None]
  - VISION BLURRED [None]
  - HEADACHE [None]
  - DYSARTHRIA [None]
